FAERS Safety Report 8404777-X (Version None)
Quarter: 2012Q2

REPORT INFORMATION
  Report Type: 
  Country: None (occurrence: None)
  Receive Date: 20120601
  Receipt Date: 20120515
  Transmission Date: 20120825
  Serious: No
  Sender: FDA-Public Use
  Company Number: US-ASTRAZENECA-2012SE31221

PATIENT
  Age: 55 Year
  Sex: Female

DRUGS (9)
  1. DILANTIN [Concomitant]
     Indication: EPILEPSY
     Route: 048
  2. FUROSEMIDE [Concomitant]
     Indication: BLOOD PRESSURE
     Route: 048
  3. SINGULAIR [Concomitant]
     Route: 048
  4. PHENYTOIN [Concomitant]
     Indication: EPILEPSY
     Route: 048
  5. SPIRONOLACTONE [Concomitant]
     Dosage: 50MG, 1 AND A HALF TABLET, DAILY
     Route: 048
  6. LACTULOS [Concomitant]
     Indication: LIVER DISORDER
     Dosage: 10 MG/15 ML, 2 TBSP, TWO TIMES A DAY
     Route: 048
  7. SYMBICORT [Suspect]
     Indication: BRONCHITIS
     Dosage: 2 PUFFS, TWO TIMES A DAY
     Route: 055
     Dates: start: 20120201
  8. POTASSIUM CHLORIDE [Concomitant]
  9. PHENOBARBITAL TAB [Concomitant]
     Indication: EPILEPSY
     Route: 048

REACTIONS (4)
  - DRUG INEFFECTIVE [None]
  - WHEEZING [None]
  - PNEUMONIA [None]
  - PRODUCTIVE COUGH [None]
